FAERS Safety Report 12405581 (Version 3)
Quarter: 2016Q4

REPORT INFORMATION
  Report Type: Report from Study
  Country: US (occurrence: US)
  Receive Date: 20160526
  Receipt Date: 20161229
  Transmission Date: 20170207
  Serious: Yes (Hospitalization, Other)
  Sender: FDA-Public Use
  Company Number: US-ROCHE-1733756

PATIENT
  Age: 77 Year
  Sex: Female
  Weight: 59 kg

DRUGS (37)
  1. VICODIN [Concomitant]
     Active Substance: ACETAMINOPHEN\HYDROCODONE BITARTRATE
     Indication: BACK PAIN
     Route: 065
     Dates: start: 20140107, end: 20160728
  2. COMPAZINE [Concomitant]
     Active Substance: PROCHLORPERAZINE MALEATE
     Indication: NAUSEA
     Route: 065
     Dates: start: 20150924, end: 20160728
  3. PEGFILGRASTIM [Concomitant]
     Active Substance: PEGFILGRASTIM
     Indication: PREMEDICATION
     Route: 065
     Dates: start: 20150930
  4. MAGNESIUM SULFATE. [Concomitant]
     Active Substance: MAGNESIUM SULFATE
     Indication: HYPOMAGNESAEMIA
     Route: 065
     Dates: start: 20151203
  5. FOLIC ACID. [Concomitant]
     Active Substance: FOLIC ACID
     Route: 065
     Dates: start: 1990
  6. REMERON [Concomitant]
     Active Substance: MIRTAZAPINE
     Indication: INSOMNIA
     Route: 065
     Dates: start: 2013
  7. DOCUSATE SODIUM. [Concomitant]
     Active Substance: DOCUSATE SODIUM
     Indication: CONSTIPATION
     Route: 065
     Dates: start: 20151116, end: 20160728
  8. BACTRIM [Concomitant]
     Active Substance: SULFAMETHOXAZOLE\TRIMETHOPRIM
     Route: 065
     Dates: start: 20160402, end: 20161117
  9. VALTREX [Concomitant]
     Active Substance: VALACYCLOVIR HYDROCHLORIDE
     Indication: VIRAL INFECTION
     Route: 065
     Dates: start: 20160421
  10. NYSTATIN. [Concomitant]
     Active Substance: NYSTATIN
     Indication: CANDIDA INFECTION
     Route: 065
     Dates: start: 20160512
  11. ATEZOLIZUMAB [Suspect]
     Active Substance: ATEZOLIZUMAB
     Indication: NON-SMALL CELL LUNG CANCER
     Dosage: MOST RECENT DOSE 1200 MG OF ATEZOLIZUMAB WAS ADMINISTERED ON 12/NOV/2015 PRIOR TO AE ONSET
     Route: 042
     Dates: start: 20150929, end: 20160315
  12. BEVACIZUMAB [Suspect]
     Active Substance: BEVACIZUMAB
     Indication: NON-SMALL CELL LUNG CANCER
     Dosage: MOST RECENT DOSE OF BEVACIZUMAB 850 MG WAS ADMINISTERED ON 22/FEB/2016 PRIOR TO AE ONSET
     Route: 042
     Dates: start: 20150929, end: 20160315
  13. BYSTOLIC [Concomitant]
     Active Substance: NEBIVOLOL HYDROCHLORIDE
     Indication: HYPERTENSION
     Route: 065
     Dates: start: 2005
  14. TRIAMTERENE. [Concomitant]
     Active Substance: TRIAMTERENE
     Indication: HYPERTENSION
     Route: 065
     Dates: start: 2005, end: 20160728
  15. ZANTAC [Concomitant]
     Active Substance: RANITIDINE HYDROCHLORIDE
     Indication: DYSPEPSIA
     Route: 065
     Dates: start: 2012
  16. PALONOSETRON HCL [Concomitant]
     Active Substance: PALONOSETRON HYDROCHLORIDE
     Indication: PREMEDICATION
     Route: 065
     Dates: start: 20150929
  17. MIRALAX [Concomitant]
     Active Substance: POLYETHYLENE GLYCOL 3350
     Indication: CONSTIPATION
     Route: 065
     Dates: start: 20151115, end: 20160728
  18. MACROBID (UNITED STATES) [Concomitant]
     Indication: URINARY TRACT INFECTION
     Route: 065
     Dates: start: 20160315, end: 20160325
  19. AMLODIPINE/OLMESARTAN MEDOXOMIL [Concomitant]
     Active Substance: AMLODIPINE MALEATE\OLMESARTAN MEDOXOMIL
     Indication: HYPERTENSION
     Route: 065
     Dates: start: 2005, end: 20160222
  20. DIPHENHYDRAMINE HCL [Concomitant]
     Active Substance: DIPHENHYDRAMINE HYDROCHLORIDE
     Indication: PREMEDICATION
     Route: 065
     Dates: start: 20150929
  21. SENNA [Concomitant]
     Active Substance: SENNA LEAF\SENNOSIDES\SENNOSIDES A AND B
     Indication: CONSTIPATION
     Route: 065
     Dates: start: 20151116, end: 20160728
  22. MAGNESIUM SULFATE/SODIUM CHLORIDE [Concomitant]
     Indication: DEHYDRATION
     Route: 065
     Dates: start: 20151203
  23. LORAZEPAM. [Concomitant]
     Active Substance: LORAZEPAM
     Indication: NAUSEA
     Route: 065
     Dates: start: 20151119, end: 20160728
  24. PERCOCET [Concomitant]
     Active Substance: ACETAMINOPHEN\OXYCODONE HYDROCHLORIDE
     Indication: PAIN
     Route: 065
     Dates: start: 20151222, end: 20160728
  25. GABAPENTIN. [Concomitant]
     Active Substance: GABAPENTIN
     Indication: NEURALGIA
     Route: 065
     Dates: start: 20151209
  26. WELLBUTRIN [Concomitant]
     Active Substance: BUPROPION HYDROCHLORIDE
     Indication: DEPRESSION
     Route: 065
     Dates: start: 1990
  27. PACLITAXEL. [Suspect]
     Active Substance: PACLITAXEL
     Indication: NON-SMALL CELL LUNG CANCER
     Dosage: MOST RECENT DOSE 330 MG OF PACLITAXEL  WAS ADMINISTERED ON 12/NOV/2015 PRIOR TO AE ONSET
     Route: 042
     Dates: start: 20150929
  28. VICODIN [Concomitant]
     Active Substance: ACETAMINOPHEN\HYDROCODONE BITARTRATE
     Indication: MYOSITIS
  29. LIPITOR [Concomitant]
     Active Substance: ATORVASTATIN CALCIUM
     Indication: HYPERCHOLESTEROLAEMIA
     Route: 065
     Dates: start: 2005
  30. EMLA [Concomitant]
     Active Substance: LIDOCAINE\PRILOCAINE
     Indication: PREMEDICATION
     Route: 065
     Dates: start: 20150929, end: 20161117
  31. FAMOTIDINE. [Concomitant]
     Active Substance: FAMOTIDINE
     Indication: PREMEDICATION
     Route: 065
     Dates: start: 20150929
  32. MACROBID (UNITED STATES) [Concomitant]
     Route: 065
     Dates: start: 20160203, end: 20160214
  33. BEVACIZUMAB [Suspect]
     Active Substance: BEVACIZUMAB
     Dosage: MOST RECENT DOSE OF BEVACIZUMAB 850 MG WAS ADMINISTERED ON 21/APR/2016 PRIOR TO AE ONSET
     Route: 042
  34. CARBOPLATIN. [Suspect]
     Active Substance: CARBOPLATIN
     Indication: NON-SMALL CELL LUNG CANCER
     Dosage: TARGET AUC = 6 MG/ML/MIN?MOST RECENT DOSE 388 MG OF CARBOPLATIN WAS ADMINISTERED ON 12/NOV/2015 PRIO
     Route: 042
     Dates: start: 20150929
  35. SYNTHROID [Concomitant]
     Active Substance: LEVOTHYROXINE SODIUM
     Indication: HYPOTHYROIDISM
     Route: 065
     Dates: start: 2005
  36. LUTEIN/ZEAXANTHIN [Concomitant]
     Indication: MACULAR DEGENERATION
     Route: 065
     Dates: start: 2013
  37. ALBUTEROL. [Concomitant]
     Active Substance: ALBUTEROL
     Indication: PARAINFLUENZAE VIRUS INFECTION
     Route: 065
     Dates: start: 20151124

REACTIONS (3)
  - Pancreatitis [Recovered/Resolved]
  - Transaminases increased [Recovered/Resolved]
  - Pneumonia [Recovered/Resolved]

NARRATIVE: CASE EVENT DATE: 20160315
